FAERS Safety Report 7692851-5 (Version None)
Quarter: 2011Q3

REPORT INFORMATION
  Report Type: 
  Country: None (occurrence: None)
  Receive Date: 20110819
  Receipt Date: 20110805
  Transmission Date: 20111222
  Serious: Yes (Death)
  Sender: FDA-Public Use
  Company Number: US-PAR PHARMACEUTICAL, INC-2011SCPR003155

PATIENT

DRUGS (1)
  1. MEGACE ES [Suspect]
     Indication: WEIGHT DECREASED
     Dosage: UNK, UNKNOWN
     Route: 048
     Dates: start: 20100101

REACTIONS (1)
  - DEATH [None]
